FAERS Safety Report 5112857-X (Version None)
Quarter: 2006Q3

REPORT INFORMATION
  Report Type: 
  Country: None (occurrence: None)
  Receive Date: 20060922
  Receipt Date: 20060913
  Transmission Date: 20061208
  Serious: Yes (Other)
  Sender: FDA-Public Use
  Company Number: DE-AMGEN-UK193478

PATIENT
  Sex: Female

DRUGS (11)
  1. KINERET [Suspect]
     Indication: RHEUMATOID ARTHRITIS
     Route: 065
     Dates: start: 20030901, end: 20041201
  2. PREDNISOLONE [Concomitant]
     Route: 065
     Dates: start: 19941001
  3. ALFACALCIDOL [Concomitant]
     Route: 065
     Dates: start: 20021001
  4. PANTOPRAZOLE SODIUM [Concomitant]
     Route: 065
     Dates: start: 20031001
  5. METOPROLOL [Concomitant]
     Route: 065
     Dates: start: 20000101
  6. ENALAPRIL [Concomitant]
     Route: 065
     Dates: start: 20000101
  7. L-THYROXIN [Concomitant]
     Route: 065
     Dates: start: 20001101
  8. TORSEMIDE [Concomitant]
     Dates: start: 20050201
  9. DIGOXIN [Concomitant]
     Route: 065
  10. PIOGLITAZONE HCL [Concomitant]
     Route: 065
  11. COLECALCIFEROL [Concomitant]
     Route: 065

REACTIONS (6)
  - ATRIAL FIBRILLATION [None]
  - CARDIAC DISORDER [None]
  - CARDIAC FAILURE [None]
  - FLATULENCE [None]
  - GASTROINTESTINAL DISORDER [None]
  - TACHYARRHYTHMIA [None]
